FAERS Safety Report 11112230 (Version 1)
Quarter: 2015Q2

REPORT INFORMATION
  Report Type: Spontaneous
  Country: US (occurrence: None)
  Receive Date: 20150513
  Receipt Date: 20150513
  Transmission Date: 20150821
  Serious: Yes (Other)
  Sender: FDA-Public Use
  Company Number: None

PATIENT
  Age: 51 Year
  Sex: Male
  Weight: 187.34 kg

DRUGS (11)
  1. LORATIDINE [Concomitant]
     Active Substance: LORATADINE
  2. ALIEVE [Concomitant]
  3. ATENELOL [Concomitant]
     Active Substance: ATENOLOL
  4. POTASSIUM CHLORIDE. [Concomitant]
     Active Substance: POTASSIUM CHLORIDE
  5. LYRICA [Concomitant]
     Active Substance: PREGABALIN
  6. ALBUTEROL IN PROAIR INHALTER [Concomitant]
  7. FUROSIMIDE [Concomitant]
     Active Substance: FUROSEMIDE
  8. INVOKANA [Suspect]
     Active Substance: CANAGLIFLOZIN
     Indication: TYPE 2 DIABETES MELLITUS
     Route: 048
     Dates: start: 20150510, end: 20150510
  9. EQUATE ARTHRITIS PAIN [Concomitant]
     Active Substance: ACETAMINOPHEN
  10. METFORMIN [Concomitant]
     Active Substance: METFORMIN HYDROCHLORIDE
  11. MAGNESIUM OXIDE. [Concomitant]
     Active Substance: MAGNESIUM OXIDE

REACTIONS (1)
  - Renal pain [None]

NARRATIVE: CASE EVENT DATE: 20150510
